FAERS Safety Report 23092801 (Version 1)
Quarter: 2023Q4

REPORT INFORMATION
  Report Type: Spontaneous
  Country: US (occurrence: US)
  Receive Date: 20231021
  Receipt Date: 20231021
  Transmission Date: 20240110
  Serious: Yes (Life-Threatening)
  Sender: FDA-Public Use
  Company Number: US-CHIESI-2023CHF05355

PATIENT
  Age: 58 Year
  Sex: Male

DRUGS (10)
  1. DEFERIPRONE [Suspect]
     Active Substance: DEFERIPRONE
     Indication: Chelation therapy
     Dosage: UNK
     Dates: start: 2022
  2. DEFERIPRONE [Suspect]
     Active Substance: DEFERIPRONE
     Indication: Thalassaemia beta
  3. DEFERIPRONE [Suspect]
     Active Substance: DEFERIPRONE
     Indication: Haemochromatosis
  4. DEFERIPRONE [Suspect]
     Active Substance: DEFERIPRONE
     Indication: Extramedullary haemopoiesis
  5. DEFERIPRONE [Suspect]
     Active Substance: DEFERIPRONE
     Indication: Splenomegaly
  6. DEFEROXAMINE [Concomitant]
     Active Substance: DEFEROXAMINE MESYLATE
     Indication: Chelation therapy
     Dosage: UNK
  7. DEFEROXAMINE [Concomitant]
     Active Substance: DEFEROXAMINE MESYLATE
     Indication: Thalassaemia beta
  8. DEFEROXAMINE [Concomitant]
     Active Substance: DEFEROXAMINE MESYLATE
     Indication: Haemochromatosis
  9. DEFEROXAMINE [Concomitant]
     Active Substance: DEFEROXAMINE MESYLATE
     Indication: Extramedullary haemopoiesis
  10. DEFEROXAMINE [Concomitant]
     Active Substance: DEFEROXAMINE MESYLATE
     Indication: Splenomegaly

REACTIONS (4)
  - Septic shock [Unknown]
  - Neutropenic sepsis [Unknown]
  - Pancytopenia [Unknown]
  - Agranulocytosis [Unknown]
